FAERS Safety Report 19549893 (Version 1)
Quarter: 2021Q3

REPORT INFORMATION
  Report Type: Report from Study
  Country: CN (occurrence: CN)
  Receive Date: 20210714
  Receipt Date: 20210714
  Transmission Date: 20211014
  Serious: Yes (Hospitalization, Other)
  Sender: FDA-Public Use
  Company Number: CN-TAKEDA-2021TUS042849

PATIENT
  Age: 19 Year
  Sex: Male

DRUGS (3)
  1. ADVATE [Suspect]
     Active Substance: ANTIHEMOPHILIC FACTOR, HUMAN RECOMBINANT
     Indication: FACTOR VIII DEFICIENCY
     Dosage: 1000 INTERNATIONAL UNIT, AT THE TIME OF BLEEDING
     Route: 042
     Dates: start: 202005, end: 20210629
  2. ADVATE [Suspect]
     Active Substance: ANTIHEMOPHILIC FACTOR, HUMAN RECOMBINANT
     Indication: FACTOR VIII DEFICIENCY
     Dosage: 1000 INTERNATIONAL UNIT, AT THE TIME OF BLEEDING
     Route: 042
     Dates: start: 202005, end: 20210629
  3. ADVATE [Suspect]
     Active Substance: ANTIHEMOPHILIC FACTOR, HUMAN RECOMBINANT
     Indication: FACTOR VIII DEFICIENCY
     Dosage: 1000 INTERNATIONAL UNIT, AT THE TIME OF BLEEDING
     Route: 042
     Dates: start: 202005, end: 20210629

REACTIONS (5)
  - Anti factor VIII antibody test [Recovering/Resolving]
  - Spontaneous haemorrhage [Recovering/Resolving]
  - Therapeutic product effect decreased [Recovering/Resolving]
  - Cerebral haemorrhage [Recovering/Resolving]
  - Product availability issue [Recovering/Resolving]

NARRATIVE: CASE EVENT DATE: 20210701
